FAERS Safety Report 21015325 (Version 1)
Quarter: 2022Q2

REPORT INFORMATION
  Report Type: Spontaneous
  Country: MX (occurrence: MX)
  Receive Date: 20220628
  Receipt Date: 20220628
  Transmission Date: 20220721
  Serious: Yes (Hospitalization, Disabling)
  Sender: FDA-Public Use
  Company Number: MX-NOVOPROD-921539

PATIENT
  Age: 75 Year
  Sex: Male
  Weight: 66 kg

DRUGS (13)
  1. AMLODIPINE [Concomitant]
     Active Substance: AMLODIPINE BESYLATE
     Dosage: UNK
  2. LOSARTAN [Concomitant]
     Active Substance: LOSARTAN
     Dosage: UNK
  3. ASPIRIN [Suspect]
     Active Substance: ASPIRIN
     Dosage: UNK
     Dates: start: 201703, end: 20220201
  4. ASPIRIN [Suspect]
     Active Substance: ASPIRIN
     Dosage: UNK
     Dates: start: 20220301, end: 2022
  5. ATORVASTATIN [Suspect]
     Active Substance: ATORVASTATIN
     Dosage: UNK
     Dates: start: 20220416, end: 2022
  6. ATORVASTATIN [Suspect]
     Active Substance: ATORVASTATIN
     Dosage: UNK
     Dates: start: 2017, end: 20220201
  7. NITROGLYCERIN [Suspect]
     Active Substance: NITROGLYCERIN
     Dosage: UNK
     Dates: start: 201703, end: 20220201
  8. CLOPIDOGREL [Suspect]
     Active Substance: CLOPIDOGREL BISULFATE
     Dosage: UNK
     Dates: start: 20200218, end: 20220201
  9. OMEPRAZOLE [Suspect]
     Active Substance: OMEPRAZOLE
     Dosage: UNK
     Dates: end: 2022
  10. NOVOLIN N [Suspect]
     Active Substance: INSULIN HUMAN
     Dosage: 5 U
     Dates: start: 20200814, end: 20200917
  11. NOVOLIN N [Suspect]
     Active Substance: INSULIN HUMAN
     Dosage: 15 U
     Dates: start: 20210401, end: 20220201
  12. NOVOLIN N [Suspect]
     Active Substance: INSULIN HUMAN
     Dosage: 8 U
     Dates: start: 20220301, end: 20220415
  13. NOVOLIN N [Suspect]
     Active Substance: INSULIN HUMAN
     Indication: Type 2 diabetes mellitus
     Dosage: 25 U
     Dates: start: 2017, end: 20200813

REACTIONS (2)
  - Ischaemic stroke [Recovered/Resolved with Sequelae]
  - Urinary tract infection [Recovered/Resolved]

NARRATIVE: CASE EVENT DATE: 20220301
